FAERS Safety Report 12683707 (Version 1)
Quarter: 2016Q3

REPORT INFORMATION
  Report Type: Spontaneous
  Country: US (occurrence: US)
  Receive Date: 20160825
  Receipt Date: 20160825
  Transmission Date: 20161109
  Serious: Yes (Other)
  Sender: FDA-Public Use
  Company Number: US-JNJFOC-20160817544

PATIENT
  Age: 57 Year
  Sex: Female
  Weight: 103.42 kg

DRUGS (2)
  1. PATRIOT RISPERIDONE [Suspect]
     Active Substance: RISPERIDONE
     Indication: PRODUCT USED FOR UNKNOWN INDICATION
     Route: 048
  2. PATRIOT RISPERIDONE [Suspect]
     Active Substance: RISPERIDONE
     Indication: PRODUCT USED FOR UNKNOWN INDICATION
     Dosage: TABLET WAS CUT INTO HALF
     Route: 048
     Dates: start: 201512

REACTIONS (6)
  - Swelling [Unknown]
  - Hypersensitivity [Unknown]
  - Autoimmune disorder [Unknown]
  - Off label use [Unknown]
  - Fatigue [Unknown]
  - Wrong technique in product usage process [Unknown]

NARRATIVE: CASE EVENT DATE: 201512
